FAERS Safety Report 18962785 (Version 1)
Quarter: 2021Q1

REPORT INFORMATION
  Report Type: Spontaneous
  Country: US (occurrence: US)
  Receive Date: 20210302
  Receipt Date: 20210302
  Transmission Date: 20210420
  Serious: Yes (Other)
  Sender: FDA-Public Use
  Company Number: None

PATIENT
  Age: 75 Year
  Sex: Female
  Weight: 71.21 kg

DRUGS (2)
  1. XELODA [Suspect]
     Active Substance: CAPECITABINE
  2. CAPECITABINE 500MG [Concomitant]
     Active Substance: CAPECITABINE
     Dates: start: 20200827, end: 20210209

REACTIONS (7)
  - Pruritus [None]
  - Dehydration [None]
  - Anaemia [None]
  - Blood sodium decreased [None]
  - Skin exfoliation [None]
  - Palmar-plantar erythrodysaesthesia syndrome [None]
  - Alopecia [None]

NARRATIVE: CASE EVENT DATE: 20200901
